FAERS Safety Report 6415610-X (Version None)
Quarter: 2009Q4

REPORT INFORMATION
  Report Type: 
  Country: None (occurrence: None)
  Receive Date: 20091027
  Receipt Date: 20091019
  Transmission Date: 20100525
  Serious: Yes (Hospitalization, Other)
  Sender: FDA-Public Use
  Company Number: US-ROCHE-654321

PATIENT
  Sex: Male
  Weight: 63.5 kg

DRUGS (3)
  1. CAPECITABINE [Suspect]
     Indication: COLORECTAL CANCER
     Route: 048
     Dates: start: 20090414
  2. NORVASC [Concomitant]
     Indication: HYPERTENSION
     Route: 048
  3. COLACE [Concomitant]
     Indication: CONSTIPATION
     Route: 048

REACTIONS (5)
  - DEHYDRATION [None]
  - HYPOPHAGIA [None]
  - RENAL DISORDER [None]
  - RENAL FAILURE [None]
  - RENAL IMPAIRMENT [None]
